FAERS Safety Report 5761863-0 (Version None)
Quarter: 2008Q2

REPORT INFORMATION
  Report Type: 
  Country: None (occurrence: None)
  Receive Date: 20080603
  Receipt Date: 20080520
  Transmission Date: 20081010
  Serious: Yes (Death)
  Sender: FDA-Public Use
  Company Number: 2008AL005564

PATIENT
  Age: 77 Year
  Sex: Male
  Weight: 136.0791 kg

DRUGS (1)
  1. DIGOXIN                    (AMIDE) [Suspect]
     Indication: CARDIAC DISORDER
     Dosage: DAILY
     Dates: start: 19920101

REACTIONS (2)
  - CARDIAC ARREST [None]
  - SUDDEN DEATH [None]
